FAERS Safety Report 8557530-0 (Version None)
Quarter: 2012Q3

REPORT INFORMATION
  Report Type: 
  Country: None (occurrence: None)
  Receive Date: 20120801
  Receipt Date: 20120730
  Transmission Date: 20120928
  Serious: Yes (Other)
  Sender: FDA-Public Use
  Company Number: US-PFIZER INC-2012141240

PATIENT
  Sex: Male
  Weight: 109 kg

DRUGS (2)
  1. ALPRAZOLAM [Suspect]
     Indication: ANXIETY
     Dosage: 1 MG, UNK
     Route: 048
     Dates: start: 19960101
  2. ALPRAZOLAM [Suspect]
     Indication: PANIC ATTACK
     Dosage: 1 TABLE, 3X/DAY
     Route: 048

REACTIONS (3)
  - BONE DISORDER [None]
  - BONE CANCER METASTATIC [None]
  - SARCOMA [None]
